FAERS Safety Report 5797656-8 (Version None)
Quarter: 2008Q2

REPORT INFORMATION
  Report Type: 
  Country: None (occurrence: None)
  Receive Date: 20080618
  Receipt Date: 20070611
  Transmission Date: 20081010
  Serious: Yes (Other)
  Sender: FDA-Public Use
  Company Number: 200714262US

PATIENT
  Sex: Female

DRUGS (3)
  1. LANTUS [Suspect]
     Dosage: 35 U HS
     Dates: start: 20070501, end: 20070601
  2. LANTUS [Suspect]
     Dosage: 30 U
     Dates: start: 20070601
  3. PIOGLITAZONE [Concomitant]

REACTIONS (1)
  - HYPOGLYCAEMIA [None]
